FAERS Safety Report 7048944-9 (Version None)
Quarter: 2010Q4

REPORT INFORMATION
  Report Type: 
  Country: None (occurrence: None)
  Receive Date: 20101008
  Receipt Date: 20100930
  Transmission Date: 20110411
  Serious: Yes (Other)
  Sender: FDA-Public Use
  Company Number: 2010-2974

PATIENT
  Age: 52 Year
  Sex: Female

DRUGS (2)
  1. DYSPORT [Suspect]
     Indication: OFF LABEL USE
     Dosage: 50 UNITS (50 UNITS,SINGLE CYCLE),INTRAMUSCULAR
     Route: 030
     Dates: start: 20100602, end: 20100602
  2. DYSPORT [Suspect]
     Indication: SKIN WRINKLING
     Dosage: 50 UNITS (50 UNITS,SINGLE CYCLE),INTRAMUSCULAR
     Route: 030
     Dates: start: 20100602, end: 20100602

REACTIONS (5)
  - DEFORMITY [None]
  - INJECTION SITE INDURATION [None]
  - INJECTION SITE SWELLING [None]
  - PRODUCT RECONSTITUTION ISSUE [None]
  - SWELLING FACE [None]
